FAERS Safety Report 8956157 (Version 3)
Quarter: 2013Q1

REPORT INFORMATION
  Report Type: Spontaneous
  Country: US (occurrence: US)
  Receive Date: 20121210
  Receipt Date: 20130301
  Transmission Date: 20140127
  Serious: Yes (Other)
  Sender: FDA-Public Use
  Company Number: US-PFIZER INC-2012308912

PATIENT
  Age: 72 Year
  Sex: Female
  Weight: 72.56 kg

DRUGS (7)
  1. LIPITOR [Suspect]
     Indication: BLOOD CHOLESTEROL INCREASED
     Dosage: 40 MG, 1X/DAY
     Route: 048
  2. ALDACTONE [Suspect]
     Indication: HYPERTENSION
     Dosage: 25 MG, 1X/DAY
     Route: 048
  3. METOPROLOL [Concomitant]
     Dosage: 25 MG, 2X/DAY
  4. FUROSEMIDE [Concomitant]
     Dosage: 80MG ONCE IN THE MORNING AND 40MG ONCE IN THE EVENING, 2X/DAY
  5. MINOXIDIL [Concomitant]
     Dosage: 20 MG (TWO 10MG IN THE MORNING AND TWO AT NIGHT), 2X/DAY
  6. PACERONE [Concomitant]
     Indication: ATRIAL FIBRILLATION
     Dosage: UNK
  7. WARFARIN [Concomitant]
     Indication: ANTICOAGULANT THERAPY
     Dosage: 2.5 MG, UNK

REACTIONS (6)
  - Cataract [Unknown]
  - Gastrointestinal disorder [Unknown]
  - Uterine disorder [Unknown]
  - Gallbladder disorder [Unknown]
  - Hypoacusis [Unknown]
  - Prothrombin level abnormal [Unknown]
